FAERS Safety Report 16824234 (Version 1)
Quarter: 2019Q3

REPORT INFORMATION
  Report Type: Spontaneous
  Country: US (occurrence: US)
  Receive Date: 20190918
  Receipt Date: 20190918
  Transmission Date: 20191005
  Serious: Yes (Death, Hospitalization, Other)
  Sender: FDA-Public Use
  Company Number: US-GILEAD-2019-0427889

PATIENT
  Age: 26 Year
  Sex: Male

DRUGS (3)
  1. VIREAD [Suspect]
     Active Substance: TENOFOVIR DISOPROXIL FUMARATE
     Indication: ACQUIRED IMMUNODEFICIENCY SYNDROME
     Dosage: 300 MG
     Route: 065
  2. EMTRIVA [Suspect]
     Active Substance: EMTRICITABINE
     Indication: ACQUIRED IMMUNODEFICIENCY SYNDROME
     Route: 065
  3. SUSTIVA [Suspect]
     Active Substance: EFAVIRENZ
     Indication: ACQUIRED IMMUNODEFICIENCY SYNDROME
     Route: 065

REACTIONS (12)
  - Hypoalbuminaemia [Fatal]
  - Respiratory arrest [Fatal]
  - Hypotension [Fatal]
  - Drug-induced liver injury [Unknown]
  - Malnutrition [Unknown]
  - Muscle fatigue [Unknown]
  - Intestinal obstruction [Unknown]
  - Bilevel positive airway pressure [Unknown]
  - Fluid imbalance [Fatal]
  - Pleural effusion [Fatal]
  - Kaposi^s sarcoma [Unknown]
  - Blood creatinine increased [Unknown]

NARRATIVE: CASE EVENT DATE: 20070124
